FAERS Safety Report 16112634 (Version 1)
Quarter: 2019Q1

REPORT INFORMATION
  Report Type: Spontaneous
  Country: US (occurrence: US)
  Receive Date: 20190325
  Receipt Date: 20190325
  Transmission Date: 20190418
  Serious: Yes (Other)
  Sender: FDA-Public Use
  Company Number: US-TEVA-2019-US-1030439

PATIENT
  Sex: Male

DRUGS (1)
  1. LAMOTRIGINE ER ACTIVIS [Suspect]
     Active Substance: LAMOTRIGINE
     Dosage: 700 MILLIGRAM DAILY;
     Route: 065
     Dates: start: 201712

REACTIONS (4)
  - Drug level below therapeutic [Unknown]
  - Loss of personal independence in daily activities [Unknown]
  - Product quality issue [Unknown]
  - Seizure [Unknown]
